FAERS Safety Report 20303837 (Version 1)
Quarter: 2022Q1

REPORT INFORMATION
  Report Type: Spontaneous
  Country: FR (occurrence: FR)
  Receive Date: 20220106
  Receipt Date: 20220106
  Transmission Date: 20220423
  Serious: Yes (Disabling, Congenital Anomaly, Other)
  Sender: FDA-Public Use
  Company Number: FR-ABBVIE-22K-056-4220343-00

PATIENT
  Sex: Male
  Weight: 3.9 kg

DRUGS (2)
  1. VALPROATE SODIUM [Suspect]
     Active Substance: VALPROATE SODIUM
     Indication: Maternal exposure timing unspecified
     Route: 064
  2. FOLIC ACID [Concomitant]
     Active Substance: FOLIC ACID
     Indication: Maternal exposure timing unspecified

REACTIONS (44)
  - Disorientation [Unknown]
  - Eyelid oedema [Unknown]
  - Cleft lip [Unknown]
  - Musculoskeletal disorder [Unknown]
  - Connective tissue disorder [Unknown]
  - Musculoskeletal stiffness [Unknown]
  - Otitis media [Recovered/Resolved]
  - Foetal anticonvulsant syndrome [Unknown]
  - Psychomotor skills impaired [Not Recovered/Not Resolved]
  - Language disorder [Not Recovered/Not Resolved]
  - Apraxia [Unknown]
  - Dyspraxia [Unknown]
  - Pain threshold decreased [Unknown]
  - Dysmorphism [Unknown]
  - Social avoidant behaviour [Unknown]
  - Separation anxiety disorder [Unknown]
  - Communication disorder [Unknown]
  - Dysgraphia [Unknown]
  - Frustration tolerance decreased [Unknown]
  - Brachydactyly [Unknown]
  - Hypertelorism [Unknown]
  - Cleft uvula [Unknown]
  - Inguinal hernia [Unknown]
  - Speech disorder developmental [Unknown]
  - Dysmorphism [Unknown]
  - Dysmorphism [Unknown]
  - Ear disorder [Unknown]
  - Nasal disorder [Unknown]
  - Pharyngeal disorder [Unknown]
  - Pasteurella infection [Unknown]
  - Musculoskeletal disorder [Unknown]
  - Connective tissue disorder [Unknown]
  - Congenital hand malformation [Unknown]
  - Mental disorder [Unknown]
  - Nervous system disorder [Unknown]
  - Autism spectrum disorder [Unknown]
  - Cognitive disorder [Unknown]
  - Developmental delay [Unknown]
  - Psychomotor retardation [Unknown]
  - Disturbance in attention [Unknown]
  - Aggression [Unknown]
  - Learning disability [Not Recovered/Not Resolved]
  - Behaviour disorder [Not Recovered/Not Resolved]
  - Foetal exposure during pregnancy [Unknown]

NARRATIVE: CASE EVENT DATE: 20051001
